FAERS Safety Report 7528342-1 (Version None)
Quarter: 2011Q2

REPORT INFORMATION
  Report Type: 
  Country: None (occurrence: None)
  Receive Date: 20110607
  Receipt Date: 20100708
  Transmission Date: 20111010
  Serious: No
  Sender: FDA-Public Use
  Company Number: US-ASTRAZENECA-2010SE31894

PATIENT
  Sex: Female

DRUGS (6)
  1. PRILOSEC OTC [Suspect]
     Dosage: 1 TABLET, 1 /DAY
     Route: 048
     Dates: start: 20100626
  2. ESTROGEN NOS [Concomitant]
     Dosage: UNKNOWN
  3. VITAMINS /90003601/ [Concomitant]
     Dosage: UNKNOWN
  4. VENLAFAXINE [Concomitant]
     Dosage: UNKNOWN
  5. CALCIUM D /00944201/ [Concomitant]
     Dosage: UNKNOWN
  6. THYROID THERAPY [Concomitant]
     Dosage: UNKNOWN

REACTIONS (1)
  - ABNORMAL DREAMS [None]
